FAERS Safety Report 23531606 (Version 1)
Quarter: 2024Q1

REPORT INFORMATION
  Report Type: Spontaneous
  Country: US (occurrence: US)
  Receive Date: 20240216
  Receipt Date: 20240216
  Transmission Date: 20240410
  Serious: No
  Sender: FDA-Public Use
  Company Number: US-009507513-2401USA009923

PATIENT
  Sex: Male

DRUGS (8)
  1. PRIMAXIN IV [Suspect]
     Active Substance: CILASTATIN SODIUM\IMIPENEM
     Indication: Nocardiosis
     Dosage: FROM HOSPITAL DAY (HD) 4 TO HD 14
  2. PRIMAXIN IV [Suspect]
     Active Substance: CILASTATIN SODIUM\IMIPENEM
     Dosage: FROM HD 20
  3. SIVEXTRO [Suspect]
     Active Substance: TEDIZOLID PHOSPHATE
     Indication: Nocardiosis
     Dosage: FROM HOSPITAL DAY 20
     Route: 048
  4. SULFAMETHOXAZOLE\TRIMETHOPRIM [Concomitant]
     Active Substance: SULFAMETHOXAZOLE\TRIMETHOPRIM
     Indication: Nocardiosis
     Dosage: FROM HOSPITAL DAY (HD) 4 TO HD 7
  5. LINEZOLID [Concomitant]
     Active Substance: LINEZOLID
     Indication: Nocardiosis
     Dosage: FROM HOSPITAL DAY (HD) 7 TO HD 20
  6. MEROPENEM [Concomitant]
     Active Substance: MEROPENEM
     Indication: Nocardiosis
     Dosage: FROM HOSPITAL DAY (HD) 16 TO HD 20
  7. PREDNISONE [Concomitant]
     Active Substance: PREDNISONE
     Indication: Sarcoidosis
     Dosage: 20 MILLIGRAM, QD
  8. PREDNISONE [Concomitant]
     Active Substance: PREDNISONE
     Dosage: 15 MILLIGRAM, QD

REACTIONS (1)
  - Product use in unapproved indication [Unknown]
